FAERS Safety Report 5576675-0 (Version None)
Quarter: 2007Q4

REPORT INFORMATION
  Report Type: 
  Country: None (occurrence: None)
  Receive Date: 20071228
  Receipt Date: 20071220
  Transmission Date: 20080405
  Serious: Yes (Death)
  Sender: FDA-Public Use
  Company Number: BE-MERCK-0712BEL00027

PATIENT
  Age: 51 Year
  Sex: Female
  Weight: 48 kg

DRUGS (12)
  1. CANCIDAS [Suspect]
     Indication: PYREXIA
     Route: 042
     Dates: start: 20071017, end: 20071017
  2. CANCIDAS [Suspect]
     Route: 042
     Dates: start: 20071018, end: 20071130
  3. CYCLOSPORINE [Concomitant]
     Indication: TRANSPLANT
     Route: 065
     Dates: start: 20071017, end: 20071023
  4. TACROLIMUS [Concomitant]
     Indication: TRANSPLANT
     Route: 065
     Dates: start: 20071024, end: 20071120
  5. MYCOPHENOLATE MOFETIL [Concomitant]
     Indication: TRANSPLANT
     Route: 065
     Dates: start: 20071121, end: 20071130
  6. VANCOMYCIN [Concomitant]
     Indication: PYREXIA
     Route: 065
     Dates: start: 20071205, end: 20071205
  7. LEVOFLOXACIN [Concomitant]
     Indication: PYREXIA
     Route: 065
     Dates: start: 20071205, end: 20071205
  8. AMIKACIN [Concomitant]
     Indication: PYREXIA
     Route: 065
     Dates: start: 20071012, end: 20071016
  9. MEROPENEM [Concomitant]
     Indication: PYREXIA
     Route: 065
     Dates: start: 20071031, end: 20071113
  10. TEICOPLANIN [Concomitant]
     Indication: PYREXIA
     Route: 065
     Dates: start: 20071017, end: 20071023
  11. CEFEPIME [Concomitant]
     Indication: PYREXIA
     Route: 065
     Dates: start: 20071012, end: 20071023
  12. CORTICOSTEROIDS (UNSPECIFIED) [Concomitant]
     Indication: TRANSPLANT
     Route: 065

REACTIONS (3)
  - ACUTE RESPIRATORY DISTRESS SYNDROME [None]
  - DRUG INEFFECTIVE [None]
  - VIRAL INFECTION [None]
